FAERS Safety Report 8366607-4 (Version None)
Quarter: 2012Q1

REPORT INFORMATION
  Report Type: 
  Country: None (occurrence: None)
  Receive Date: 20120323
  Receipt Date: 20110408
  Transmission Date: 20120608
  Serious: Yes (Hospitalization)
  Sender: FDA-Public Use
  Company Number: 163-21880-11041180

PATIENT
  Sex: Female

DRUGS (10)
  1. CITALOPRAM HYDROBROMIDE [Concomitant]
  2. METFORMIN (METFORMN) [Concomitant]
  3. ASPIRIN [Concomitant]
  4. DARVOCET A500 (PROPACET) [Concomitant]
  5. ARIMIDEX [Concomitant]
  6. VITAMIN D [Concomitant]
  7. LOVASTATIN [Concomitant]
  8. REVLIMID [Suspect]
     Indication: MYELODYSPLASTIC SYNDROME
     Dosage: 10 MG, DAILY X 21 DAYS, PO
     Route: 048
     Dates: start: 20101001, end: 20110408
  9. NORTRIPTYLINE HCL [Concomitant]
  10. SYNTHROID [Concomitant]

REACTIONS (1)
  - ACUTE MYELOID LEUKAEMIA [None]
